FAERS Safety Report 6772977-0 (Version None)
Quarter: 2010Q2

REPORT INFORMATION
  Report Type: 
  Country: None (occurrence: None)
  Receive Date: 20100614
  Receipt Date: 20100528
  Transmission Date: 20101027
  Serious: Yes (Other)
  Sender: FDA-Public Use
  Company Number: 2009001259

PATIENT
  Sex: 0

DRUGS (2)
  1. ERLOTINIB HYDROCHLORIDE [Suspect]
     Indication: GLIOMA
     Dosage: 200 MG, QD, ORAL
     Route: 048
  2. BEVACIZUMAB [Suspect]
     Indication: MALIGNANT GLIOMA
     Dosage: 10 MG/KG, Q2W

REACTIONS (1)
  - INTESTINAL PERFORATION [None]
